FAERS Safety Report 4924732-1 (Version None)
Quarter: 2006Q1

REPORT INFORMATION
  Report Type: 
  Country: None (occurrence: None)
  Receive Date: 20060127
  Receipt Date: 20051215
  Transmission Date: 20060701
  Serious: Yes (Other)
  Sender: FDA-Public Use
  Company Number: 2005171539

PATIENT
  Age: 58 Year
  Sex: Female
  Weight: 62.1428 kg

DRUGS (2)
  1. LYRICA [Suspect]
     Indication: NEURALGIA
     Dosage: 25 MG (25 MG,1 IN 1 D)
     Dates: start: 20051207
  2. ANTI-ASTHMATICS (ANTI-ASTHMATICS) [Concomitant]

REACTIONS (5)
  - CHEST PAIN [None]
  - FIBROMYALGIA [None]
  - INFLUENZA LIKE ILLNESS [None]
  - PLEURITIC PAIN [None]
  - RESPIRATORY TRACT CONGESTION [None]
